FAERS Safety Report 7918375-5 (Version None)
Quarter: 2011Q4

REPORT INFORMATION
  Report Type: 
  Country: None (occurrence: None)
  Receive Date: 20111116
  Receipt Date: 20111107
  Transmission Date: 20120403
  Serious: Yes (Hospitalization)
  Sender: FDA-Public Use
  Company Number: FR-ELI_LILLY_AND_COMPANY-FR201111001685

PATIENT
  Sex: Male

DRUGS (4)
  1. PREDNISOLONE [Concomitant]
     Indication: PREMEDICATION
     Dosage: UNK, UNKNOWN
  2. ALIMTA [Suspect]
     Indication: ADENOCARCINOMA
     Dosage: UNK, UNKNOWN
     Dates: start: 20080502
  3. EMEND [Concomitant]
     Indication: PREMEDICATION
     Dosage: UNK, UNKNOWN
  4. VOGALENE [Concomitant]
     Indication: PREMEDICATION
     Dosage: UNK, UNKNOWN

REACTIONS (1)
  - HYPOTHYROIDISM [None]
